FAERS Safety Report 16439201 (Version 4)
Quarter: 2019Q3

REPORT INFORMATION
  Report Type: Spontaneous
  Country: US (occurrence: US)
  Receive Date: 20190617
  Receipt Date: 20190730
  Transmission Date: 20191004
  Serious: Yes (Other)
  Sender: FDA-Public Use
  Company Number: US-BAYER-2019-112097

PATIENT
  Age: 38 Year
  Sex: Female
  Weight: 73.47 kg

DRUGS (4)
  1. MIRENA [Suspect]
     Active Substance: LEVONORGESTREL
     Indication: CONTRACEPTION
     Dosage: 20 MCG/24HR, CONT
     Route: 015
     Dates: start: 20171208, end: 20190610
  2. MIRENA [Suspect]
     Active Substance: LEVONORGESTREL
     Indication: CONTRACEPTION
  3. MIRENA [Suspect]
     Active Substance: LEVONORGESTREL
     Indication: MENORRHAGIA
  4. MIRENA [Suspect]
     Active Substance: LEVONORGESTREL
     Indication: MENORRHAGIA
     Dosage: UNK
     Route: 015

REACTIONS (8)
  - Wrong technique in device usage process [None]
  - Embedded device [Recovered/Resolved]
  - Device breakage [None]
  - Genital haemorrhage [Recovered/Resolved]
  - Amenorrhoea [None]
  - Complication of device removal [Recovered/Resolved]
  - Device difficult to use [Recovered/Resolved]
  - Device physical property issue [None]

NARRATIVE: CASE EVENT DATE: 20190610
